FAERS Safety Report 6084339-2 (Version None)
Quarter: 2009Q1

REPORT INFORMATION
  Report Type: 
  Country: None (occurrence: None)
  Receive Date: 20090217
  Receipt Date: 20090123
  Transmission Date: 20090719
  Serious: Yes (Other)
  Sender: FDA-Public Use
  Company Number: 2009AL000165

PATIENT
  Sex: Female

DRUGS (1)
  1. CITALOPRAM HYDROBROMIDE [Suspect]
     Indication: DRUG USE FOR UNKNOWN INDICATION
     Dates: start: 20081001

REACTIONS (14)
  - ARTHRALGIA [None]
  - CONTUSION [None]
  - DEPRESSION [None]
  - EATING DISORDER [None]
  - GASTRIC DISORDER [None]
  - GENERAL PHYSICAL HEALTH DETERIORATION [None]
  - IMMUNE SYSTEM DISORDER [None]
  - INSOMNIA [None]
  - MALAISE [None]
  - PHARYNGITIS [None]
  - SPINAL OSTEOARTHRITIS [None]
  - VEIN PAIN [None]
  - VOMITING [None]
  - WEIGHT DECREASED [None]
